FAERS Safety Report 16388983 (Version 1)
Quarter: 2019Q2

REPORT INFORMATION
  Report Type: Spontaneous
  Country: GB (occurrence: GB)
  Receive Date: 20190604
  Receipt Date: 20190604
  Transmission Date: 20190711
  Serious: Yes (Other)
  Sender: FDA-Public Use
  Company Number: GB-TEVA-2019-GB-1057701

PATIENT
  Age: 74 Year
  Sex: Male
  Weight: 94 kg

DRUGS (15)
  1. ATORVASTATIN [Concomitant]
     Active Substance: ATORVASTATIN
     Dates: start: 20180911
  2. DOXYCYCLINE. [Concomitant]
     Active Substance: DOXYCYCLINE
     Dosage: 2 STAT AND 1 FOR 7DAYS
     Dates: start: 20190408, end: 20190415
  3. CLARITHROMYCIN. [Concomitant]
     Active Substance: CLARITHROMYCIN
     Dosage: FOR 7 DAYS STOP STATIN WI...
     Dates: start: 20190220, end: 20190227
  4. ACETYLSALICYLIC ACID [Concomitant]
     Active Substance: ASPIRIN
     Dates: start: 20181002
  5. IPRATROPIUM BROMIDE. [Concomitant]
     Active Substance: IPRATROPIUM BROMIDE
     Dosage: THREE TO FOUR TIMES A DAY
     Dates: start: 20180405, end: 20190430
  6. PREDNISOLONE. [Concomitant]
     Active Substance: PREDNISOLONE
     Dosage: FOR 7 DAYS AND STOP
     Dates: start: 20190408, end: 20190415
  7. DICLOFENAC SODIUM. [Concomitant]
     Active Substance: DICLOFENAC SODIUM
     Dosage: APPLY
     Dates: start: 20181002
  8. ISPAGHULA EXTRACT\PSYLLIUM [Concomitant]
     Active Substance: HERBALS\PLANTAGO OVATA SEED\PLANTAGO SEED
     Dosage: ORANGE
     Dates: start: 20180126
  9. CHLORAMPHENICOL [Concomitant]
     Active Substance: CHLORAMPHENICOL
     Dosage: FOR 7 DAYS
     Dates: start: 20190220, end: 20190227
  10. MESALAZINE [Concomitant]
     Active Substance: MESALAMINE
     Dates: start: 20180515
  11. LANSOPRAZOLE. [Concomitant]
     Active Substance: LANSOPRAZOLE
     Dates: start: 20180405
  12. PREDNISOLONE. [Suspect]
     Active Substance: PREDNISOLONE
     Route: 065
     Dates: start: 20190430
  13. SALBUTAMOL [Concomitant]
     Active Substance: ALBUTEROL
     Dosage: AS DIRECTED
     Dates: start: 20190430
  14. ISOSORBIDE MONONITRATE. [Concomitant]
     Active Substance: ISOSORBIDE MONONITRATE
     Dosage: 8AM AND 2PM
     Dates: start: 20190108
  15. LYMECYCLINE [Concomitant]
     Active Substance: LYMECYCLINE
     Dates: start: 20180503

REACTIONS (1)
  - Dyspnoea [Recovered/Resolved]

NARRATIVE: CASE EVENT DATE: 20190430
